FAERS Safety Report 18534143 (Version 3)
Quarter: 2022Q2

REPORT INFORMATION
  Report Type: Spontaneous
  Country: DE (occurrence: DE)
  Receive Date: 20201123
  Receipt Date: 20220603
  Transmission Date: 20220721
  Serious: Yes (Hospitalization, Other)
  Sender: FDA-Public Use
  Company Number: DE-002147023-NVSC2019DE073770

PATIENT
  Age: 50 Year
  Sex: Male
  Weight: 98 kg

DRUGS (29)
  1. ATORVASTATIN CALCIUM [Suspect]
     Active Substance: ATORVASTATIN CALCIUM
     Dosage: 20 MG, 1X/DAY; (EVENING)
     Dates: start: 2018
  2. VALSARTAN [Suspect]
     Active Substance: VALSARTAN
     Dosage: 0.5 DF, 1X/DAY (0.5 INTO 40 MG)
  3. VALSARTAN [Suspect]
     Active Substance: VALSARTAN
     Dosage: 40 MG, 2X/DAY  (MORNING AND EVENING)
  4. VALSARTAN [Suspect]
     Active Substance: VALSARTAN
     Dosage: 80 MG
     Dates: start: 201406, end: 201808
  5. EZETIMIBE [Suspect]
     Active Substance: EZETIMIBE
     Dosage: UNK
     Dates: start: 201706, end: 201709
  6. PENICILLIN [Suspect]
     Active Substance: PENICILLIN
     Dosage: UNK
  7. AMIODARONE HYDROCHLORIDE [Suspect]
     Active Substance: AMIODARONE HYDROCHLORIDE
     Dosage: 200 MG
  8. ATORVASTATIN [Suspect]
     Active Substance: ATORVASTATIN
     Dosage: 80 MG
  9. MOXIFLOXACIN HYDROCHLORIDE [Suspect]
     Active Substance: MOXIFLOXACIN HYDROCHLORIDE
     Indication: Pyrexia
     Dosage: UNK
     Dates: start: 201901, end: 201901
  10. MOXIFLOXACIN HYDROCHLORIDE [Suspect]
     Active Substance: MOXIFLOXACIN HYDROCHLORIDE
     Indication: Bronchitis
  11. VALSARTAN [Suspect]
     Active Substance: VALSARTAN
     Indication: Hypertension
     Dosage: 80 MG, 1X/DAY
     Dates: start: 2007
  12. VALSARTAN [Suspect]
     Active Substance: VALSARTAN
     Dosage: 40 MG, 1X/DAY (MORNING)
  13. VALSARTAN [Suspect]
     Active Substance: VALSARTAN
     Dosage: 1 DF, 1X/DAY (BETWEEN 80 MG AND 160 MG)
     Dates: start: 201210
  14. VALSARTAN [Suspect]
     Active Substance: VALSARTAN
     Dosage: 80 MG
     Dates: start: 201406, end: 201808
  15. OMEPRAZOLE [Concomitant]
     Active Substance: OMEPRAZOLE
     Dosage: 20 MG, 1X/DAY
  16. ALPRAZOLAM [Concomitant]
     Active Substance: ALPRAZOLAM
     Dosage: 0.25 MG, 2X/DAY
  17. PITAVASTATIN [Concomitant]
     Active Substance: PITAVASTATIN
     Dosage: 2 MG, 1X/DAY
  18. GARLIC [Concomitant]
     Active Substance: GARLIC
     Dosage: 1000 MG, 2X/DAY
  19. ASPIRIN [Concomitant]
     Active Substance: ASPIRIN
     Dosage: 100 MG
     Dates: start: 2007
  20. VITAMIN D3 [Concomitant]
     Active Substance: CHOLECALCIFEROL
     Dosage: UNK
  21. ASPIRIN [Concomitant]
     Active Substance: ASPIRIN
     Dosage: 100 MG, 1X/DAY
  22. TICAGRELOR [Concomitant]
     Active Substance: TICAGRELOR
     Dosage: 90 MG, 2X/DAY
  23. SIMVASTATIN [Concomitant]
     Active Substance: SIMVASTATIN
     Dosage: UNK
  24. OMEGA-3 FATTY ACIDS [Concomitant]
     Active Substance: OMEGA-3 FATTY ACIDS
     Dosage: 1000 MG, 2X/DAY
  25. MAGNESIUM [Concomitant]
     Active Substance: MAGNESIUM
     Dosage: 300 MG, 1X/DAY
  26. BUTOSOL [Concomitant]
     Dosage: 1 DF, 1X/DAY
  27. PITAVASTATIN CALCIUM [Concomitant]
     Active Substance: PITAVASTATIN CALCIUM
     Dosage: 2 MG, 1X/DAY
  28. ATORVASTATIN [Concomitant]
     Active Substance: ATORVASTATIN
     Dosage: 20 MG, 1X/DAY (EVENING)
  29. ASPIRIN [Concomitant]
     Active Substance: ASPIRIN
     Dosage: 1 DF, 1X/DAY (EVENING)

REACTIONS (62)
  - Blood pressure increased [Recovering/Resolving]
  - Bronchitis chronic [Recovering/Resolving]
  - Chest pain [Unknown]
  - Hypertensive crisis [Recovering/Resolving]
  - Asthenia [Unknown]
  - Fatigue [Unknown]
  - Productive cough [Unknown]
  - C-reactive protein increased [Unknown]
  - Hypertension [Unknown]
  - Anxiety [Unknown]
  - Pyrexia [Recovering/Resolving]
  - Malaise [Unknown]
  - Cardiac discomfort [Unknown]
  - Coronary artery disease [Unknown]
  - Palpitations [Unknown]
  - Bradycardia [Unknown]
  - Squamous cell carcinoma [Unknown]
  - Spinal stenosis [Unknown]
  - Haemarthrosis [Unknown]
  - Hyperhidrosis [Unknown]
  - Fall [Unknown]
  - Pain [Unknown]
  - Joint dislocation [Unknown]
  - Arrhythmia [Unknown]
  - Myocardial infarction [Unknown]
  - Contusion [Unknown]
  - Dyspnoea exertional [Unknown]
  - Tinnitus [Unknown]
  - Back pain [Unknown]
  - Limb injury [Unknown]
  - Gait disturbance [Unknown]
  - Spinal osteoarthritis [Unknown]
  - Rhinitis allergic [Unknown]
  - Dyspnoea [Unknown]
  - Viral infection [Unknown]
  - Dizziness [Unknown]
  - Ventricular extrasystoles [Unknown]
  - Muscle spasms [Unknown]
  - Asthma [Unknown]
  - Drug intolerance [Unknown]
  - Cough [Not Recovered/Not Resolved]
  - Chest discomfort [Unknown]
  - Chronic obstructive pulmonary disease [Unknown]
  - Arteriosclerosis [Unknown]
  - Drug hypersensitivity [Unknown]
  - Hypercholesterolaemia [Unknown]
  - Hepatic pain [Recovered/Resolved]
  - Blood pressure abnormal [Recovered/Resolved]
  - Osteoarthritis [Unknown]
  - Hypoaesthesia [Unknown]
  - Myalgia [Recovered/Resolved]
  - Sinusitis [Unknown]
  - General physical health deterioration [Unknown]
  - Nausea [Unknown]
  - Merycism [Unknown]
  - Fear of disease [Unknown]
  - Quality of life decreased [Unknown]
  - Panic disorder [Unknown]
  - Hypersomnia [Unknown]
  - Emotional distress [Unknown]
  - Sleep disorder [Unknown]
  - Drug hypersensitivity [Unknown]

NARRATIVE: CASE EVENT DATE: 20120501
